FAERS Safety Report 5886839-4 (Version None)
Quarter: 2008Q3

REPORT INFORMATION
  Report Type: 
  Country: None (occurrence: None)
  Receive Date: 20080915
  Receipt Date: 20080829
  Transmission Date: 20090109
  Serious: Yes (Other)
  Sender: FDA-Public Use
  Company Number: 8036865

PATIENT
  Age: 46 Year
  Sex: Male

DRUGS (5)
  1. PREDNISOLONE [Suspect]
     Indication: RENAL TRANSPLANT
  2. CYCLOSPORINE [Suspect]
     Indication: RENAL TRANSPLANT
  3. AZATHIOPRINE [Concomitant]
  4. MINOXIDIL [Concomitant]
  5. MYCOPHENOLATE MOFETIL [Concomitant]

REACTIONS (4)
  - FOLLICULITIS [None]
  - HYPERPLASIA [None]
  - LYMPHOID TISSUE HYPERPLASIA [None]
  - NO THERAPEUTIC RESPONSE [None]
